FAERS Safety Report 6298716-8 (Version None)
Quarter: 2009Q3

REPORT INFORMATION
  Report Type: 
  Country: None (occurrence: None)
  Receive Date: 20090806
  Receipt Date: 20090729
  Transmission Date: 20100115
  Serious: Yes (Hospitalization)
  Sender: FDA-Public Use
  Company Number: FR-BIOGENIDEC-2009BI018774

PATIENT
  Age: 22 Year
  Sex: Female
  Weight: 57 kg

DRUGS (13)
  1. TYSABRI [Suspect]
     Indication: MULTIPLE SCLEROSIS
     Route: 042
     Dates: start: 20081201
  2. FUCIDINE CAP [Concomitant]
     Indication: FURUNCLE
     Dates: start: 20090401
  3. NEURONTIN [Concomitant]
     Route: 048
     Dates: start: 20090401
  4. NEXIUM [Concomitant]
     Route: 048
  5. XATRAL [Concomitant]
     Route: 048
     Dates: start: 20080801
  6. CERIS [Concomitant]
     Route: 048
     Dates: start: 20080501
  7. MINIRIN [Concomitant]
     Route: 045
     Dates: start: 20081201
  8. FORLAX [Concomitant]
  9. EDUCTYL [Concomitant]
     Dates: start: 20081201
  10. CYMBALTA [Concomitant]
     Dates: start: 20081201
  11. TOPALGIC [Concomitant]
     Route: 048
     Dates: start: 20081201
  12. XANAX [Concomitant]
     Route: 048
     Dates: start: 20081201
  13. URBANYL [Concomitant]
     Dates: start: 20090401

REACTIONS (1)
  - FURUNCLE [None]
